FAERS Safety Report 4458596-X (Version None)
Quarter: 2004Q3

REPORT INFORMATION
  Report Type: 
  Country: None (occurrence: None)
  Receive Date: 20040917
  Receipt Date: 20030813
  Transmission Date: 20050211
  Serious: Yes (Other)
  Sender: FDA-Public Use
  Company Number: US-JNJFOC-20030803058

PATIENT
  Age: 3 Year
  Sex: Female
  Weight: 14.9687 kg

DRUGS (1)
  1. TOPAMAX [Suspect]
     Indication: CONVULSION
     Dosage: 62.5 MG, IN 1 DAY, ORAL
     Route: 048

REACTIONS (4)
  - ANHIDROSIS [None]
  - CONDITION AGGRAVATED [None]
  - FLUSHING [None]
  - LOSS OF CONSCIOUSNESS [None]
